FAERS Safety Report 8590202-5 (Version None)
Quarter: 2012Q3

REPORT INFORMATION
  Report Type: 
  Country: None (occurrence: None)
  Receive Date: 20120813
  Receipt Date: 20120807
  Transmission Date: 20120928
  Serious: Yes (Hospitalization)
  Sender: FDA-Public Use
  Company Number: US-UCBSA-063165

PATIENT
  Age: 71 Year
  Sex: Male

DRUGS (3)
  1. CIMZIA [Suspect]
     Indication: CROHN'S DISEASE
     Dates: start: 20100101
  2. FLAGYL [Concomitant]
     Dates: start: 20120711
  3. CIPROFLOXACIN HCL [Concomitant]
     Dates: start: 20120711

REACTIONS (1)
  - ABDOMINAL ABSCESS [None]
